FAERS Safety Report 5450102-6 (Version None)
Quarter: 2007Q3

REPORT INFORMATION
  Report Type: 
  Country: None (occurrence: None)
  Receive Date: 20070912
  Receipt Date: 20070904
  Transmission Date: 20080115
  Serious: Yes (Hospitalization)
  Sender: FDA-Public Use
  Company Number: US-ROCHE-515202

PATIENT
  Age: 51 Year
  Sex: Female
  Weight: 68 kg

DRUGS (2)
  1. NAPROSYN [Suspect]
     Indication: BACK PAIN
     Dosage: DOSING FREQUENCY VARIED. FORM: PILL
     Route: 048
     Dates: start: 19810101, end: 20040101
  2. MEFENAMIC ACID [Suspect]
     Indication: ENDOMETRIOSIS
     Route: 048
     Dates: start: 20010101, end: 20040101

REACTIONS (3)
  - ENDOMETRIOSIS [None]
  - GASTRITIS [None]
  - HIATUS HERNIA [None]
